FAERS Safety Report 16098223 (Version 2)
Quarter: 2019Q2

REPORT INFORMATION
  Report Type: Spontaneous
  Country: DE (occurrence: DE)
  Receive Date: 20190321
  Receipt Date: 20190506
  Transmission Date: 20190711
  Serious: Yes (Other)
  Sender: FDA-Public Use
  Company Number: DE-PROVELL PHARMACEUTICALS-2064345

PATIENT
  Sex: Female
  Weight: 80 kg

DRUGS (3)
  1. EUTHYROX [Suspect]
     Active Substance: LEVOTHYROXINE SODIUM
     Dates: end: 201903
  2. EUTHYROX [Suspect]
     Active Substance: LEVOTHYROXINE SODIUM
  3. EUTHYROX [Suspect]
     Active Substance: LEVOTHYROXINE SODIUM
     Indication: POST PROCEDURAL HYPOTHYROIDISM
     Dates: start: 2005

REACTIONS (14)
  - Decreased appetite [None]
  - Weight increased [None]
  - Angina pectoris [None]
  - Hypoxia [None]
  - Palpitations [None]
  - Hypotension [None]
  - Dyspepsia [Recovering/Resolving]
  - Feeling hot [None]
  - Oedema peripheral [None]
  - General physical health deterioration [None]
  - Hyperhidrosis [None]
  - Hot flush [None]
  - Drug intolerance [None]
  - Fatigue [None]
